FAERS Safety Report 13892411 (Version 1)
Quarter: 2017Q3

REPORT INFORMATION
  Report Type: Spontaneous
  Country: US (occurrence: US)
  Receive Date: 20170822
  Receipt Date: 20170822
  Transmission Date: 20171127
  Serious: No
  Sender: FDA-Public Use
  Company Number: US-ROCHE-707400

PATIENT
  Age: 52 Year
  Sex: Male
  Weight: 24 kg

DRUGS (14)
  1. AZULFIDINE [Concomitant]
     Active Substance: SULFASALAZINE
     Route: 048
  2. PREDNISONE. [Concomitant]
     Active Substance: PREDNISONE
     Dosage: 1-2 QD
     Route: 065
  3. PERCOCET [Concomitant]
     Active Substance: ACETAMINOPHEN\OXYCODONE HYDROCHLORIDE
     Dosage: DRUG: PERCOCET 10/325
     Route: 048
  4. ACTEMRA [Suspect]
     Active Substance: TOCILIZUMAB
     Indication: RHEUMATOID ARTHRITIS
     Dosage: FORM: INFUSION; STARTING DOSE
     Route: 042
     Dates: start: 20100427, end: 20100427
  5. AZULFIDINE [Concomitant]
     Active Substance: SULFASALAZINE
     Dosage: BID
     Route: 048
  6. XANAX [Concomitant]
     Active Substance: ALPRAZOLAM
     Route: 048
  7. TRAZODONE [Concomitant]
     Active Substance: TRAZODONE HYDROCHLORIDE
     Dosage: AT NIGHT
     Route: 065
  8. ZANTAC [Concomitant]
     Active Substance: RANITIDINE HYDROCHLORIDE
     Dosage: ONE DAILY
     Route: 065
  9. MS CONTIN [Concomitant]
     Active Substance: MORPHINE SULFATE
     Dosage: EVERY NIGHT
     Route: 048
  10. ARAVA [Concomitant]
     Active Substance: LEFLUNOMIDE
     Route: 048
  11. PREDNISONE. [Concomitant]
     Active Substance: PREDNISONE
     Dosage: 5 MG 1- 2 QD
     Route: 065
  12. SIMPONI [Concomitant]
     Active Substance: GOLIMUMAB
     Dosage: 0.5 ML
     Route: 065
  13. AMBIEN [Concomitant]
     Active Substance: ZOLPIDEM TARTRATE
     Dosage: DOSE  AS NEEDED AT NIGHT
     Route: 065
  14. LORTAB [Concomitant]
     Active Substance: ACETAMINOPHEN\HYDROCODONE BITARTRATE
     Dosage: TID
     Route: 065

REACTIONS (1)
  - Infusion related reaction [Recovered/Resolved]

NARRATIVE: CASE EVENT DATE: 20100427
